FAERS Safety Report 5846002-X (Version None)
Quarter: 2008Q3

REPORT INFORMATION
  Report Type: 
  Country: None (occurrence: None)
  Receive Date: 20080813
  Receipt Date: 20080728
  Transmission Date: 20090109
  Serious: No
  Sender: FDA-Public Use
  Company Number: ISPH-2008-0156

PATIENT
  Age: 50 Year
  Sex: Female
  Weight: 124.7 kg

DRUGS (5)
  1. AZASITE [Suspect]
     Indication: EYE INFECTION
     Dosage: OPTHALMIC
     Route: 047
     Dates: start: 20080501, end: 20080613
  2. PROTONIX (PANTAPRAZOLE SODIUM) [Concomitant]
  3. CYCLOBENZAPRINE HYDROCHLORIDE [Concomitant]
  4. SUDAFED 12 HOUR [Concomitant]
  5. GENTEAL (UROGASTRONE) [Concomitant]

REACTIONS (5)
  - ECTROPION [None]
  - ERYTHEMA [None]
  - EYE SWELLING [None]
  - HYPERSENSITIVITY [None]
  - VISION BLURRED [None]
